FAERS Safety Report 10262436 (Version 1)
Quarter: 2014Q2

REPORT INFORMATION
  Report Type: Spontaneous
  Country: PH (occurrence: PH)
  Receive Date: 20140626
  Receipt Date: 20140626
  Transmission Date: 20141212
  Serious: Yes (Other)
  Sender: FDA-Public Use
  Company Number: PH-BAYER-2014-092735

PATIENT
  Sex: 0

DRUGS (8)
  1. NIFEDIPINE [Suspect]
     Dosage: UNK
     Route: 064
  2. NIFEDIPINE [Suspect]
     Dosage: UNK
     Route: 064
  3. SILDENAFIL [Concomitant]
     Route: 064
  4. SILDENAFIL [Concomitant]
     Route: 064
  5. DEXAMETHASONE [Concomitant]
     Dosage: UNK
     Route: 064
  6. DEXAMETHASONE [Concomitant]
     Dosage: UNK
     Route: 064
  7. OXYGEN [Concomitant]
     Route: 064
  8. OXYGEN [Concomitant]
     Route: 064

REACTIONS (3)
  - Low birth weight baby [None]
  - Premature baby [None]
  - Foetal exposure during pregnancy [None]
